FAERS Safety Report 8821516 (Version 3)
Quarter: 2020Q1

REPORT INFORMATION
  Report Type: Spontaneous
  Country: US (occurrence: US)
  Receive Date: 20121002
  Receipt Date: 20200123
  Transmission Date: 20200409
  Serious: Yes (Other)
  Sender: FDA-Public Use
  Company Number: US-PFIZER INC-2012239275

PATIENT
  Age: 70 Year
  Sex: Female
  Weight: 77.1 kg

DRUGS (7)
  1. LATANOPROST. [Suspect]
     Active Substance: LATANOPROST
     Indication: OPEN ANGLE GLAUCOMA
     Dosage: UNK
     Route: 047
     Dates: start: 20110908, end: 20110912
  2. TRAVATAN [Suspect]
     Active Substance: TRAVOPROST
     Indication: GLAUCOMA
     Dosage: UNK
     Dates: start: 20110923, end: 20110927
  3. LUMIGAN [Suspect]
     Active Substance: BIMATOPROST
     Dosage: UNK
  4. XALATAN [Suspect]
     Active Substance: LATANOPROST
     Dosage: 1 GTT, DAILY AT NIGHT BOTH EYES
     Route: 047
     Dates: start: 2012
  5. NEXIUM [Concomitant]
     Active Substance: ESOMEPRAZOLE MAGNESIUM
     Indication: GASTROOESOPHAGEAL REFLUX DISEASE
     Dosage: 40 MG, DAILY
  6. XALATAN [Suspect]
     Active Substance: LATANOPROST
     Indication: OPEN ANGLE GLAUCOMA
     Dosage: 1 GTT, DAILY AT NIGHT BOTH EYES
     Route: 047
     Dates: start: 1998
  7. LATANOPROST. [Suspect]
     Active Substance: LATANOPROST
     Dosage: 1 GTT, DAILY AT NIGHT, BOTH EYES
     Route: 047
     Dates: start: 201209, end: 201209

REACTIONS (21)
  - Mental impairment [Recovering/Resolving]
  - Brain neoplasm [Unknown]
  - Pain in extremity [Not Recovered/Not Resolved]
  - Emotional disorder [Unknown]
  - Dyspepsia [Unknown]
  - Depression [Not Recovered/Not Resolved]
  - Insomnia [Not Recovered/Not Resolved]
  - Arthralgia [Not Recovered/Not Resolved]
  - Hypersensitivity [Unknown]
  - Eye pruritus [Unknown]
  - Eye swelling [Unknown]
  - Constipation [Unknown]
  - Influenza [Not Recovered/Not Resolved]
  - Myalgia [Unknown]
  - Lacrimation increased [Unknown]
  - Product formulation issue [Unknown]
  - Ocular hyperaemia [Unknown]
  - Abnormal behaviour [Not Recovered/Not Resolved]
  - Anxiety [Recovering/Resolving]
  - Nausea [Not Recovered/Not Resolved]
  - Memory impairment [Unknown]

NARRATIVE: CASE EVENT DATE: 2012
